FAERS Safety Report 12594533 (Version 1)
Quarter: 2016Q3

REPORT INFORMATION
  Report Type: Spontaneous
  Country: GB (occurrence: GB)
  Receive Date: 20160726
  Receipt Date: 20160726
  Transmission Date: 20161109
  Serious: Yes (Other)
  Sender: FDA-Public Use
  Company Number: GB-WATSON-2016-15859

PATIENT
  Age: 49 Year
  Sex: Female
  Weight: 80.28 kg

DRUGS (3)
  1. BOOTS PARACETAMOL [Concomitant]
     Indication: PRODUCT USED FOR UNKNOWN INDICATION
     Dosage: UNK, UNKNOWN
     Route: 065
  2. DOXYCYCLINE ACTAVIS [Suspect]
     Active Substance: DOXYCYCLINE
     Indication: LYME DISEASE
     Dosage: 100 MG, BID (WITH FOOD, MORE THAN 2 HOURS AFTER OMEPRAZOLE, WITH WATER, AT LEAST 2 HOURS BEFORE BED)
     Route: 048
     Dates: start: 20160622
  3. OMEPRAZOLE. [Concomitant]
     Active Substance: OMEPRAZOLE
     Indication: GASTROOESOPHAGEAL REFLUX DISEASE
     Dosage: 10 MG, UNKNOWN
     Route: 065

REACTIONS (1)
  - Oesophageal pain [Recovering/Resolving]

NARRATIVE: CASE EVENT DATE: 20160630
